FAERS Safety Report 12638704 (Version 2)
Quarter: 2016Q3

REPORT INFORMATION
  Report Type: Report from Study
  Country: US (occurrence: US)
  Receive Date: 20160809
  Receipt Date: 20160822
  Transmission Date: 20161109
  Serious: Yes (Other)
  Sender: FDA-Public Use
  Company Number: US-GILEAD-2016-0226949

PATIENT
  Age: 65 Year
  Sex: Male
  Weight: 58.5 kg

DRUGS (5)
  1. PHOSPHORUS [Concomitant]
     Active Substance: PHOSPHORUS
  2. LACTULOSE. [Concomitant]
     Active Substance: LACTULOSE
  3. TENOFOVIR DISOPROXIL FUMARATE. [Suspect]
     Active Substance: TENOFOVIR DISOPROXIL FUMARATE
     Indication: HEPATITIS B
     Dosage: 300 MG, UNK
     Route: 048
  4. NADOLOL. [Concomitant]
     Active Substance: NADOLOL
  5. PROTONIX                           /00661201/ [Concomitant]
     Active Substance: OMEPRAZOLE

REACTIONS (3)
  - Hepatic cirrhosis [Unknown]
  - Portal hypertension [Unknown]
  - Anaemia [Unknown]
